FAERS Safety Report 6919132-9 (Version None)
Quarter: 2010Q3

REPORT INFORMATION
  Report Type: 
  Country: None (occurrence: None)
  Receive Date: 20100811
  Receipt Date: 20100802
  Transmission Date: 20110219
  Serious: Yes (Life-Threatening, Hospitalization)
  Sender: FDA-Public Use
  Company Number: DK-ROCHE-698698

PATIENT
  Sex: Female
  Weight: 58 kg

DRUGS (2)
  1. ROACTEMRA [Suspect]
     Dosage: FREQUENCY : Q4WK
     Route: 042
     Dates: start: 20091110
  2. METHOTREXATE [Concomitant]
     Dosage: FREQUENCY: QWK
     Route: 048
     Dates: start: 20051107, end: 20091111

REACTIONS (3)
  - ACUTE MYOCARDIAL INFARCTION [None]
  - FEMORAL NECK FRACTURE [None]
  - TRANSIENT ISCHAEMIC ATTACK [None]
